FAERS Safety Report 10431166 (Version 1)
Quarter: 2014Q3

REPORT INFORMATION
  Report Type: Spontaneous
  Country: US (occurrence: None)
  Receive Date: 20140902
  Receipt Date: 20140902
  Transmission Date: 20150326
  Serious: Yes (Other)
  Sender: FDA-Public Use
  Company Number: 2515444-2014-00009

PATIENT
  Sex: Male

DRUGS (1)
  1. BANANA BOAT NOS [Suspect]
     Active Substance: AVOBENZONE\HOMOSALATE\OCTISALATE\OCTOCRYLENE OR OXYBENZONE OR OCTINOXATE OR TITANIUM DIOXIDE OR PADIMATE O OR OCTINOX
     Indication: PROPHYLAXIS AGAINST SOLAR RADIATION
     Dosage: NO DOSAGE LIMIT?
     Route: 061
     Dates: start: 20130705

REACTIONS (2)
  - Multiple injuries [None]
  - Thermal burn [None]

NARRATIVE: CASE EVENT DATE: 20130705
